FAERS Safety Report 7728591-3 (Version None)
Quarter: 2011Q3

REPORT INFORMATION
  Report Type: 
  Country: None (occurrence: None)
  Receive Date: 20110817
  Receipt Date: 20100813
  Transmission Date: 20111222
  Serious: Yes (Hospitalization, Other)
  Sender: FDA-Public Use
  Company Number: 20109135

PATIENT
  Age: 7 Year
  Sex: Male

DRUGS (1)
  1. LIORESAL [Suspect]
     Indication: MUSCLE SPASTICITY
     Dosage: 100 MCG, DAILY, INTRATHECAL
     Route: 039

REACTIONS (5)
  - BACK PAIN [None]
  - WOUND INFECTION STAPHYLOCOCCAL [None]
  - PYREXIA [None]
  - HOSPITALISATION [None]
  - WOUND DRAINAGE [None]
